FAERS Safety Report 7918862-X (Version None)
Quarter: 2011Q4

REPORT INFORMATION
  Report Type: 
  Country: None (occurrence: None)
  Receive Date: 20111116
  Receipt Date: 20111111
  Transmission Date: 20120403
  Serious: Yes (Death)
  Sender: FDA-Public Use
  Company Number: US-PFIZER INC-2011278533

PATIENT
  Sex: Female

DRUGS (2)
  1. GLUCOTROL [Suspect]
  2. EFFEXOR XR [Suspect]

REACTIONS (1)
  - INTRA-UTERINE DEATH [None]
